FAERS Safety Report 5690570-8 (Version None)
Quarter: 2008Q2

REPORT INFORMATION
  Report Type: 
  Country: None (occurrence: None)
  Receive Date: 20080401
  Receipt Date: 19850624
  Transmission Date: 20081010
  Serious: Yes (Death, Congenital Anomaly, Other)
  Sender: FDA-Public Use
  Company Number: US-ROCHE-850200846001

PATIENT
  Sex: Male

DRUGS (1)
  1. ACCUTANE [Suspect]
     Dates: start: 19840315, end: 19840415

REACTIONS (16)
  - CONGENITAL ANOMALY [None]
  - CONGENITAL CENTRAL NERVOUS SYSTEM ANOMALY [None]
  - CONVULSION [None]
  - DEATH [None]
  - DYSMORPHISM [None]
  - EAR MALFORMATION [None]
  - EYELID PTOSIS [None]
  - HEARING IMPAIRED [None]
  - MICROGNATHIA [None]
  - NOSE DEFORMITY [None]
  - NYSTAGMUS [None]
  - PROMINENT EPICANTHAL FOLDS [None]
  - PSYCHOMOTOR SKILLS IMPAIRED [None]
  - PUPILLARY REFLEX IMPAIRED [None]
  - SKULL MALFORMATION [None]
  - VISUAL ACUITY REDUCED [None]
